FAERS Safety Report 7717516-2 (Version None)
Quarter: 2011Q3

REPORT INFORMATION
  Report Type: 
  Country: None (occurrence: None)
  Receive Date: 20110830
  Receipt Date: 20110817
  Transmission Date: 20111222
  Serious: Yes (Hospitalization)
  Sender: FDA-Public Use
  Company Number: FR-ELI_LILLY_AND_COMPANY-FR201104001694

PATIENT
  Age: 82 Year
  Sex: Female

DRUGS (5)
  1. LAMALINE [Concomitant]
     Indication: SCIATICA
     Dosage: 6 DF, QD
  2. PIASCLEDINE                        /01305801/ [Concomitant]
     Dosage: 1 DF, QD
  3. UVEDOSE [Concomitant]
     Dosage: 1 DF, QD
  4. FORTEO [Suspect]
     Indication: SPINAL FRACTURE
     Dosage: 20 UG, QD
     Route: 058
     Dates: start: 20101201
  5. CALCIUM CARBONATE [Concomitant]
     Dosage: 2 DF, QD

REACTIONS (1)
  - BLADDER PROLAPSE [None]
